FAERS Safety Report 10698146 (Version 3)
Quarter: 2015Q1

REPORT INFORMATION
  Report Type: Spontaneous
  Country: US (occurrence: US)
  Receive Date: 20150108
  Receipt Date: 20150305
  Transmission Date: 20150721
  Serious: Yes (Hospitalization, Other)
  Sender: FDA-Public Use
  Company Number: US-TEVA-532603USA

PATIENT
  Age: 33 Year
  Sex: Female
  Weight: 51.3 kg

DRUGS (2)
  1. EPOPROSTENOL [Suspect]
     Active Substance: EPOPROSTENOL
     Indication: PULMONARY ARTERIAL HYPERTENSION
     Dosage: 30,000 NG/ML - 49 ML/DAY - 20 NG/KG/MIN
     Route: 065
     Dates: start: 20141106
  2. REVATIO [Concomitant]
     Active Substance: SILDENAFIL CITRATE

REACTIONS (5)
  - Gastritis [Unknown]
  - Dieulafoy^s vascular malformation [Unknown]
  - Arteriovenous malformation [Recovering/Resolving]
  - Infusion site pruritus [Unknown]
  - Gastrointestinal haemorrhage [Recovered/Resolved]

NARRATIVE: CASE EVENT DATE: 20141231
